FAERS Safety Report 16343347 (Version 2)
Quarter: 2019Q2

REPORT INFORMATION
  Report Type: Report from Study
  Country: PL (occurrence: PL)
  Receive Date: 20190522
  Receipt Date: 20190610
  Transmission Date: 20190711
  Serious: Yes (Hospitalization)
  Sender: FDA-Public Use
  Company Number: PL-ACTELION-A-NJ2019-190778

PATIENT
  Age: 59 Year
  Sex: Male

DRUGS (1)
  1. VENTAVIS [Suspect]
     Active Substance: ILOPROST
     Indication: PULMONARY ARTERIAL HYPERTENSION
     Dosage: 5 MCG 6ID
     Route: 055
     Dates: start: 20170805, end: 20190506

REACTIONS (5)
  - Hospitalisation [Unknown]
  - Vital functions abnormal [Unknown]
  - Respiratory disorder [Unknown]
  - Condition aggravated [Unknown]
  - Drug ineffective [Unknown]

NARRATIVE: CASE EVENT DATE: 2019
